FAERS Safety Report 8924445 (Version 1)
Quarter: 2012Q4

REPORT INFORMATION
  Report Type: 
  Country: AR (occurrence: AR)
  Receive Date: 20121126
  Receipt Date: 20121126
  Transmission Date: 20130627
  Serious: Yes (Other)
  Sender: FDA-Public Use
  Company Number: AR-PFIZER INC-2012289778

PATIENT
  Age: 55 Year
  Sex: Male

DRUGS (3)
  1. SOMAVERT [Suspect]
     Dosage: 10 mg, 1x/day
     Dates: start: 20111129
  2. SOMAVERT [Suspect]
     Dosage: 15 mg, 1x/day
  3. SOMAVERT [Suspect]
     Dosage: 20 mg, 1x/day

REACTIONS (2)
  - Thyroid disorder [Unknown]
  - Hormone level abnormal [Unknown]
